FAERS Safety Report 5584219-2 (Version None)
Quarter: 2008Q1

REPORT INFORMATION
  Report Type: 
  Country: None (occurrence: None)
  Receive Date: 20080108
  Receipt Date: 20080104
  Transmission Date: 20080703
  Serious: Yes (Other)
  Sender: FDA-Public Use
  Company Number: A0701099A

PATIENT
  Age: 25 Year
  Sex: Female

DRUGS (1)
  1. ALLI [Suspect]
     Indication: WEIGHT LOSS DIET
     Route: 048
     Dates: start: 20071229, end: 20080101

REACTIONS (5)
  - ABDOMINAL PAIN LOWER [None]
  - DYSMENORRHOEA [None]
  - HORMONE LEVEL ABNORMAL [None]
  - METRORRHAGIA [None]
  - VAGINAL HAEMORRHAGE [None]
